FAERS Safety Report 23136542 (Version 1)
Quarter: 2023Q4

REPORT INFORMATION
  Report Type: Spontaneous
  Country: US (occurrence: US)
  Receive Date: 20231102
  Receipt Date: 20231102
  Transmission Date: 20240110
  Serious: No
  Sender: FDA-Public Use
  Company Number: US-OYSTER POINT PHARMA, INC-US-OYS-23-001004

PATIENT
  Age: 70 Year
  Sex: Female

DRUGS (1)
  1. TYRVAYA [Suspect]
     Active Substance: VARENICLINE TARTRATE
     Indication: Dry eye
     Dosage: UNK, BID
     Route: 045
     Dates: start: 20230822

REACTIONS (6)
  - Bronchospasm [Unknown]
  - Dyspnoea [Unknown]
  - Stridor [Recovered/Resolved]
  - Cough [Recovered/Resolved]
  - Sneezing [Unknown]
  - Throat irritation [Unknown]

NARRATIVE: CASE EVENT DATE: 20230822
